FAERS Safety Report 10050924 (Version 3)
Quarter: 2014Q2

REPORT INFORMATION
  Report Type: Spontaneous
  Country: US (occurrence: None)
  Receive Date: 20140328
  Receipt Date: 20140507
  Transmission Date: 20141212
  Serious: Yes (Death, Hospitalization, Other)
  Sender: FDA-Public Use
  Company Number: UTC-046273

PATIENT
  Age: 68 Year
  Sex: Female
  Weight: 71.21 kg

DRUGS (4)
  1. REMODULIN (5 MILLIGRAM/MILLILITERS, INJECTION FOR INFUSION) (TREPROSTINIL SODIUM)? [Suspect]
     Indication: PULMONARY ARTERIAL HYPERTENSION
     Dosage: 237.6 UG/KG (0.165 UG/KG,1 IN 1 MIN)
     Route: 041
     Dates: start: 20060531
  2. LETAIRIS (AMBRISENTAN) (TABLETS) [Concomitant]
  3. REVATIO (SILDENAFIL CITRATE) [Concomitant]
  4. COUMADIN (WARFARIN SODIUM) [Concomitant]

REACTIONS (5)
  - Duodenal fistula [None]
  - Diarrhoea [None]
  - Dehydration [None]
  - Hypokalaemia [None]
  - Respiratory distress [None]
